FAERS Safety Report 20182877 (Version 1)
Quarter: 2021Q4

REPORT INFORMATION
  Report Type: Spontaneous
  Country: US (occurrence: None)
  Receive Date: 20211214
  Receipt Date: 20211214
  Transmission Date: 20220303
  Serious: Yes (Other)
  Sender: FDA-Public Use
  Company Number: None

PATIENT
  Age: 30 Year
  Sex: Male
  Weight: 110.7 kg

DRUGS (4)
  1. HALOPERIDOL [Suspect]
     Active Substance: HALOPERIDOL
     Dosage: OTHER FREQUENCY : EVERY 4 WEEKS;?
     Route: 030
     Dates: end: 20211001
  2. PAROXETINE [Concomitant]
     Active Substance: PAROXETINE
  3. CLOZAPINE [Concomitant]
     Active Substance: CLOZAPINE
  4. LITHIUM [Concomitant]
     Active Substance: LITHIUM

REACTIONS (3)
  - Gynaecomastia [None]
  - Therapy change [None]
  - Therapy cessation [None]

NARRATIVE: CASE EVENT DATE: 20210315
